FAERS Safety Report 13026985 (Version 1)
Quarter: 2016Q4

REPORT INFORMATION
  Report Type: Spontaneous
  Country: FR (occurrence: FR)
  Receive Date: 20161214
  Receipt Date: 20161214
  Transmission Date: 20170207
  Serious: Yes (Other)
  Sender: FDA-Public Use
  Company Number: FR-MYLANLABS-2016M1054969

PATIENT

DRUGS (1)
  1. KETOCONAZOLE MYLAN 2%, GEL EN SACHET-DOSE [Suspect]
     Active Substance: KETOCONAZOLE
     Indication: PRODUCT USED FOR UNKNOWN INDICATION
     Dosage: UNK
     Route: 048
     Dates: start: 20161102

REACTIONS (3)
  - Medication error [Recovered/Resolved]
  - Incorrect route of drug administration [Recovered/Resolved]
  - Vomiting [Recovered/Resolved]
